FAERS Safety Report 11314635 (Version 4)
Quarter: 2015Q3

REPORT INFORMATION
  Report Type: Report from Study
  Country: JP (occurrence: JP)
  Receive Date: 20150727
  Receipt Date: 20150908
  Transmission Date: 20151125
  Serious: Yes (Hospitalization)
  Sender: FDA-Public Use
  Company Number: JP-ASTELLAS-2015JP001282

PATIENT
  Age: 64 Year
  Sex: Female

DRUGS (11)
  1. AMLODIPINE [Concomitant]
     Active Substance: AMLODIPINE BESYLATE
     Indication: HYPERTENSION
     Route: 048
     Dates: end: 20150710
  2. BETANIS [Suspect]
     Active Substance: MIRABEGRON
     Indication: HYPERTONIC BLADDER
     Route: 048
     Dates: start: 20111213, end: 20141202
  3. VESICARE [Suspect]
     Active Substance: SOLIFENACIN SUCCINATE
     Indication: HYPERTONIC BLADDER
     Route: 048
     Dates: start: 20141213, end: 20150710
  4. ECLAR [Concomitant]
     Active Substance: DEPRODONE PROPIONATE
     Indication: PUSTULAR PSORIASIS
     Dosage: ADEQUATE DOSE
     Route: 061
     Dates: end: 20150710
  5. ECLAR [Concomitant]
     Active Substance: DEPRODONE PROPIONATE
     Dosage: ADEQUATE DOSE
     Route: 061
     Dates: start: 20150722
  6. MOHRUS [Concomitant]
     Active Substance: KETOPROFEN
     Indication: OSTEOARTHRITIS
     Route: 061
     Dates: end: 20150710
  7. MOHRUS [Concomitant]
     Active Substance: KETOPROFEN
     Route: 061
     Dates: start: 20150728
  8. MIRABEGRON [Suspect]
     Active Substance: MIRABEGRON
     Indication: HYPERTONIC BLADDER
     Route: 048
     Dates: start: 20141203, end: 20150710
  9. ALSIODOL [Concomitant]
     Active Substance: ALFACALCIDOL
     Indication: OSTEOPOROSIS
     Route: 048
     Dates: end: 20150710
  10. MOHRUS [Concomitant]
     Active Substance: KETOPROFEN
     Indication: EPICONDYLITIS
     Route: 061
     Dates: end: 20150710
  11. FLOMOX                             /01418603/ [Concomitant]
     Indication: GINGIVITIS
     Route: 048
     Dates: start: 20150204, end: 20150212

REACTIONS (4)
  - Constipation [Recovered/Resolved]
  - Bile duct stone [Recovered/Resolved]
  - Cholangitis [Recovered/Resolved]
  - Gingivitis [Recovered/Resolved]

NARRATIVE: CASE EVENT DATE: 20141229
